FAERS Safety Report 9890376 (Version 1)
Quarter: 2014Q1

REPORT INFORMATION
  Report Type: Spontaneous
  Country: US (occurrence: None)
  Receive Date: 20140211
  Receipt Date: 20140211
  Transmission Date: 20141002
  Serious: Yes (Other)
  Sender: FDA-Public Use
  Company Number: None

PATIENT
  Age: 62 Year
  Sex: Male
  Weight: 90.72 kg

DRUGS (1)
  1. MIDAZOLAM [Suspect]

REACTIONS (5)
  - Lethargy [None]
  - Tremor [None]
  - Anxiety [None]
  - Hypertension [None]
  - Abnormal behaviour [None]
